FAERS Safety Report 5123862-1 (Version None)
Quarter: 2006Q4

REPORT INFORMATION
  Report Type: 
  Country: None (occurrence: None)
  Receive Date: 20061010
  Receipt Date: 20061004
  Transmission Date: 20070319
  Serious: Yes (Hospitalization)
  Sender: FDA-Public Use
  Company Number: JP-JPN-A200604036

PATIENT
  Age: 45 Year
  Sex: Male

DRUGS (5)
  1. PAXIL [Suspect]
     Indication: DEPRESSION
     Route: 048
     Dates: start: 20060802, end: 20060908
  2. ZOLPIDEM TARTRATE [Concomitant]
     Route: 048
  3. LENDORMIN [Concomitant]
     Route: 048
  4. LIPITOR [Concomitant]
  5. DANTROLENE SODIUM [Concomitant]

REACTIONS (6)
  - CHILLS [None]
  - HYPERHIDROSIS [None]
  - MUSCLE RIGIDITY [None]
  - MYALGIA [None]
  - SEROTONIN SYNDROME [None]
  - TREMOR [None]
